FAERS Safety Report 18623589 (Version 1)
Quarter: 2020Q4

REPORT INFORMATION
  Report Type: Report from Study
  Country: CN (occurrence: CN)
  Receive Date: 20201216
  Receipt Date: 20201216
  Transmission Date: 20210114
  Serious: Yes (Hospitalization)
  Sender: FDA-Public Use
  Company Number: CN-PFIZER INC-2020469986

PATIENT
  Age: 16 Year
  Sex: Male
  Weight: 59.5 kg

DRUGS (11)
  1. COMPOUND GLYCYRRHIZIN INJECTION [Concomitant]
     Indication: SKIN DISORDER
     Dosage: 60 ML, 1X/DAY
     Route: 041
     Dates: start: 20201118, end: 20201123
  2. LORATADINE. [Concomitant]
     Active Substance: LORATADINE
     Indication: ANTIALLERGIC THERAPY
     Dosage: 10 MG, 1X/DAY
     Route: 048
     Dates: start: 20201118, end: 20201123
  3. CALCIUM CARBONATE/COLECALCIFEROL [Concomitant]
     Active Substance: CALCIUM CARBONATE\CHOLECALCIFEROL
     Indication: MINERAL SUPPLEMENTATION
     Dosage: 600 MG, 1X/DAY
     Route: 048
     Dates: start: 20201118
  4. FAMCICLOVIR. [Concomitant]
     Active Substance: FAMCICLOVIR
     Indication: ANTIVIRAL TREATMENT
     Dosage: 250 MG, 3X/DAY
     Route: 048
     Dates: start: 20201118
  5. EBASTINE [Concomitant]
     Active Substance: EBASTINE
     Indication: ANTIALLERGIC THERAPY
     Dosage: 20 MG, EVERY NIGHT (1X/DAY)
     Route: 048
     Dates: start: 20201118
  6. CRISABOROLE [Suspect]
     Active Substance: CRISABOROLE
     Indication: DERMATITIS ATOPIC
     Dosage: UNK, 2X/DAY
     Route: 061
     Dates: start: 20201010, end: 20201115
  7. VITAMIN C [Concomitant]
     Active Substance: ASCORBIC ACID
     Indication: SKIN DISORDER
     Dosage: 2 G, 1X/DAY
     Route: 041
     Dates: start: 20201118, end: 20201123
  8. CICLOSPORIN [Concomitant]
     Active Substance: CYCLOSPORINE
     Indication: IMMUNOSUPPRESSANT DRUG THERAPY
     Dosage: 50 MG, 2X/DAY
     Route: 048
     Dates: start: 20201118, end: 20201118
  9. CEFIXIME. [Concomitant]
     Active Substance: CEFIXIME
     Indication: INFECTION
     Dosage: 0.1 G, 2X/DAY
     Route: 048
     Dates: start: 20201118, end: 20201123
  10. RABEPRAZOLE SODIUM. [Concomitant]
     Active Substance: RABEPRAZOLE SODIUM
     Indication: PROPHYLAXIS
     Dosage: 10 MG, 1X/DAY
     Route: 048
     Dates: start: 20201118
  11. POTASSIUM CHLORIDE. [Concomitant]
     Active Substance: POTASSIUM CHLORIDE
     Indication: MINERAL SUPPLEMENTATION
     Dosage: 0.5 G, 2X/DAY (SUSTAINED RELEASE TABLETS)
     Route: 048
     Dates: start: 20201118

REACTIONS (2)
  - Dermatitis atopic [Recovering/Resolving]
  - Skin infection [Recovering/Resolving]

NARRATIVE: CASE EVENT DATE: 20201118
